FAERS Safety Report 8573965 (Version 2)
Quarter: 2013Q2

REPORT INFORMATION
  Report Type: Spontaneous
  Country: US (occurrence: US)
  Receive Date: 20120522
  Receipt Date: 20130517
  Transmission Date: 20140414
  Serious: Yes (Hospitalization)
  Sender: FDA-Public Use
  Company Number: US-BAYER-2012-049540

PATIENT
  Age: 24 Year
  Sex: Female
  Weight: 64 kg

DRUGS (3)
  1. GIANVI [Suspect]
     Indication: ORAL CONTRACEPTION
     Dosage: 3-20 MG-MCG, 1 TABLET QD DAILY
     Route: 048
     Dates: start: 201001, end: 201112
  2. YAZ [Suspect]
     Dosage: UNK
     Dates: start: 201001, end: 201112
  3. METROGEL-VAGINAL [METRONIDAZOLE] [Concomitant]
     Dosage: 0.75 %, 1 APPLICATOR FULL EVERY HS FOR 7 DAYS
     Route: 067
     Dates: start: 20111128

REACTIONS (8)
  - Pulmonary embolism [None]
  - Pulmonary infarction [None]
  - Injury [None]
  - General physical health deterioration [None]
  - Pain [None]
  - Emotional distress [None]
  - Anxiety [None]
  - Pain [None]
